FAERS Safety Report 19798642 (Version 1)
Quarter: 2021Q3

REPORT INFORMATION
  Report Type: Spontaneous
  Country: JP (occurrence: JP)
  Receive Date: 20210907
  Receipt Date: 20210907
  Transmission Date: 20211014
  Serious: Yes (Other)
  Sender: FDA-Public Use
  Company Number: JP-PFIZER INC-202101100630

PATIENT
  Age: 5 Decade
  Sex: Female

DRUGS (1)
  1. ZITHROMAC SR 2G [Suspect]
     Active Substance: AZITHROMYCIN MONOHYDRATE
     Dosage: UNK

REACTIONS (7)
  - Hypersensitivity [Unknown]
  - Anaphylactoid reaction [Unknown]
  - Headache [Unknown]
  - Physical deconditioning [Unknown]
  - Blood pressure decreased [Unknown]
  - Mobility decreased [Unknown]
  - Nausea [Unknown]
